FAERS Safety Report 8513840-4 (Version None)
Quarter: 2012Q3

REPORT INFORMATION
  Report Type: 
  Country: None (occurrence: None)
  Receive Date: 20120717
  Receipt Date: 20120711
  Transmission Date: 20120928
  Serious: Yes (Other)
  Sender: FDA-Public Use
  Company Number: US-AMGEN-USASP2011058627

PATIENT
  Age: 67 Year
  Sex: Male
  Weight: 81.633 kg

DRUGS (4)
  1. ENBREL [Suspect]
     Dosage: 50 MG, QWK
     Dates: start: 19991101
  2. METHOTREXATE [Concomitant]
     Dosage: 2.5 MG, 5 TIMES/WK
     Dates: start: 19980101
  3. METHOTREXATE [Concomitant]
     Dosage: 5 MG, QWK
     Dates: start: 19990101
  4. ENBREL [Suspect]
     Indication: RHEUMATOID ARTHRITIS
     Dosage: 50 MG, QWK
     Dates: start: 19991101

REACTIONS (19)
  - SPINAL OSTEOARTHRITIS [None]
  - NEURALGIA [None]
  - INFECTION [None]
  - LABORATORY TEST ABNORMAL [None]
  - PAIN IN EXTREMITY [None]
  - LIGAMENT SPRAIN [None]
  - BACK DISORDER [None]
  - NEPHROLITHIASIS [None]
  - NODULE [None]
  - MUSCULOSKELETAL STIFFNESS [None]
  - GASTROINTESTINAL DISORDER [None]
  - NASOPHARYNGITIS [None]
  - VERTIGO [None]
  - NEOPLASM PROSTATE [None]
  - NERVE COMPRESSION [None]
  - MUSCULOSKELETAL PAIN [None]
  - OEDEMA PERIPHERAL [None]
  - BLISTER [None]
  - RHEUMATOID ARTHRITIS [None]
